FAERS Safety Report 6668930-8 (Version None)
Quarter: 2010Q2

REPORT INFORMATION
  Report Type: 
  Country: None (occurrence: None)
  Receive Date: 20100402
  Receipt Date: 20100318
  Transmission Date: 20101027
  Serious: Yes (Hospitalization)
  Sender: FDA-Public Use
  Company Number: UTC-000978

PATIENT
  Age: 75 Year
  Sex: Female
  Weight: 72.3 kg

DRUGS (7)
  1. TYVASO [Suspect]
     Indication: PULMONARY HYPERTENSION
     Dosage: 72 MCG (6 MCG, 12 IN 1 D), INHALATION
     Route: 055
     Dates: start: 20040622
  2. PRAVASTATIN [Concomitant]
  3. VERAPAMIL RET (VERAPAMIL) [Concomitant]
  4. SALBUTAMOL DA (SALBUTAMOL) [Concomitant]
  5. MARCUMAR [Concomitant]
  6. PANTOPRAZOLE SODIUM [Concomitant]
  7. PRAVASTATIN SODIUM [Concomitant]

REACTIONS (2)
  - GASTRIC CANCER [None]
  - METASTASES TO GALLBLADDER [None]
